FAERS Safety Report 21393017 (Version 1)
Quarter: 2022Q3

REPORT INFORMATION
  Report Type: Report from Study
  Country: US (occurrence: None)
  Receive Date: 20220929
  Receipt Date: 20220929
  Transmission Date: 20221027
  Serious: Yes (Hospitalization)
  Sender: FDA-Public Use
  Company Number: US-Eisai Medical Research-EC-2022-123013

PATIENT
  Age: 80 Year
  Sex: Female

DRUGS (2)
  1. LENVIMA [Suspect]
     Active Substance: LENVATINIB
     Indication: Endometrial cancer
     Route: 048
     Dates: start: 20220822, end: 20220908
  2. KEYTRUDA [Suspect]
     Active Substance: PEMBROLIZUMAB
     Indication: Endometrial cancer
     Dosage: UNKNOWN START DATE OR DOSE.
     Route: 042
     Dates: end: 20220909

REACTIONS (2)
  - Mental status changes [Unknown]
  - Lethargy [Unknown]

NARRATIVE: CASE EVENT DATE: 20220909
